FAERS Safety Report 24612823 (Version 1)
Quarter: 2024Q4

REPORT INFORMATION
  Report Type: Spontaneous
  Country: CA (occurrence: CA)
  Receive Date: 20241113
  Receipt Date: 20241113
  Transmission Date: 20250114
  Serious: Yes (Hospitalization, Other)
  Sender: Haleon PLC
  Company Number: CA-002147023-NVSC2023CA023717

PATIENT
  Age: 75 Year
  Sex: Female
  Weight: 70 kg

DRUGS (79)
  1. DICLOFENAC DIETHYLAMINE [Suspect]
     Active Substance: DICLOFENAC DIETHYLAMINE
     Indication: Arthralgia
     Route: 065
  2. Paracetamol+pseudoephedrine hcl [Concomitant]
     Indication: Product used for unknown indication
  3. BRINZOLAMIDE\TIMOLOL [Suspect]
     Active Substance: BRINZOLAMIDE\TIMOLOL
     Indication: Glaucoma
     Route: 047
  4. BRINZOLAMIDE\TIMOLOL [Suspect]
     Active Substance: BRINZOLAMIDE\TIMOLOL
     Route: 047
  5. ESTRADIOL [Suspect]
     Active Substance: ESTRADIOL
     Indication: Product used for unknown indication
     Route: 065
  6. ESTRADIOL [Suspect]
     Active Substance: ESTRADIOL
     Route: 062
  7. AMOXICILLIN [Concomitant]
     Active Substance: AMOXICILLIN
     Indication: Product used for unknown indication
  8. ATORVASTATIN CALCIUM [Suspect]
     Active Substance: ATORVASTATIN CALCIUM
     Indication: Dyslipidaemia
     Route: 065
  9. ATORVASTATIN CALCIUM [Suspect]
     Active Substance: ATORVASTATIN CALCIUM
     Indication: Product used for unknown indication
     Route: 065
  10. IPRATROPIUM [Suspect]
     Active Substance: IPRATROPIUM
     Indication: Rhinitis
     Route: 045
  11. IPRATROPIUM [Suspect]
     Active Substance: IPRATROPIUM
     Route: 065
  12. IPRATROPIUM [Suspect]
     Active Substance: IPRATROPIUM
     Route: 045
  13. IPRATROPIUM [Suspect]
     Active Substance: IPRATROPIUM
     Route: 045
  14. IPRATROPIUM [Suspect]
     Active Substance: IPRATROPIUM
     Route: 065
  15. IPRATROPIUM [Suspect]
     Active Substance: IPRATROPIUM
     Route: 045
  16. IPRATROPIUM [Suspect]
     Active Substance: IPRATROPIUM
     Route: 045
  17. IPRATROPIUM [Suspect]
     Active Substance: IPRATROPIUM
     Route: 045
  18. ZOPICLONE [Suspect]
     Active Substance: ZOPICLONE
     Indication: Insomnia
     Route: 065
  19. ZOPICLONE [Suspect]
     Active Substance: ZOPICLONE
     Route: 065
  20. ZOPICLONE [Suspect]
     Active Substance: ZOPICLONE
     Dosage: UNK
     Route: 065
  21. PYRIDOXINE HYDROCHLORIDE [Suspect]
     Active Substance: PYRIDOXINE HYDROCHLORIDE
     Indication: Product used for unknown indication
     Route: 065
  22. PYRIDOXINE HYDROCHLORIDE [Suspect]
     Active Substance: PYRIDOXINE HYDROCHLORIDE
     Route: 065
  23. PYRIDOXINE HYDROCHLORIDE [Suspect]
     Active Substance: PYRIDOXINE HYDROCHLORIDE
     Route: 065
  24. PYRIDOXINE HYDROCHLORIDE [Suspect]
     Active Substance: PYRIDOXINE HYDROCHLORIDE
     Route: 065
  25. PYRIDOXINE HYDROCHLORIDE [Suspect]
     Active Substance: PYRIDOXINE HYDROCHLORIDE
     Route: 065
  26. PYRIDOXINE HYDROCHLORIDE [Suspect]
     Active Substance: PYRIDOXINE HYDROCHLORIDE
     Route: 065
  27. ESTRADIOL [Suspect]
     Active Substance: ESTRADIOL
     Indication: Menopausal symptoms
     Route: 065
  28. ESTRADIOL [Suspect]
     Active Substance: ESTRADIOL
     Route: 065
  29. ESTRADIOL [Suspect]
     Active Substance: ESTRADIOL
     Route: 065
  30. ATORVASTATIN CALCIUM [Concomitant]
     Active Substance: ATORVASTATIN CALCIUM
     Indication: Product used for unknown indication
  31. BRINZOLAMIDE [Suspect]
     Active Substance: BRINZOLAMIDE
     Indication: Glaucoma
     Route: 065
  32. ADVIL [Suspect]
     Active Substance: IBUPROFEN
     Indication: Arthralgia
     Route: 065
  33. ADVIL [Suspect]
     Active Substance: IBUPROFEN
     Indication: Product used for unknown indication
     Route: 065
  34. CHOLECALCIFEROL [Concomitant]
     Active Substance: CHOLECALCIFEROL
     Indication: Product used for unknown indication
  35. NAPROXEN SODIUM [Concomitant]
     Active Substance: NAPROXEN SODIUM
     Indication: Product used for unknown indication
  36. AZOPT [Suspect]
     Active Substance: BRINZOLAMIDE
     Indication: Glaucoma
     Dosage: UNK (SUSPENSION)
     Route: 047
  37. CLONAZEPAM [Suspect]
     Active Substance: CLONAZEPAM
     Indication: Product used for unknown indication
     Route: 065
  38. CLONAZEPAM [Suspect]
     Active Substance: CLONAZEPAM
     Route: 065
  39. CLONAZEPAM [Suspect]
     Active Substance: CLONAZEPAM
     Route: 065
  40. PREGABALIN [Suspect]
     Active Substance: PREGABALIN
     Indication: Arthralgia
     Route: 065
  41. PREGABALIN [Suspect]
     Active Substance: PREGABALIN
     Route: 065
  42. LATANOPROST [Suspect]
     Active Substance: LATANOPROST
     Indication: Glaucoma
     Route: 047
  43. LATANOPROST [Suspect]
     Active Substance: LATANOPROST
     Dosage: UNK (EYE DROPS)
     Route: 065
  44. LATANOPROST [Suspect]
     Active Substance: LATANOPROST
     Route: 047
  45. LATANOPROST [Suspect]
     Active Substance: LATANOPROST
     Route: 047
  46. LATANOPROST [Suspect]
     Active Substance: LATANOPROST
     Route: 047
  47. ACETAMINOPHEN [Concomitant]
     Active Substance: ACETAMINOPHEN
     Indication: Product used for unknown indication
  48. CALTRATE WITH VITAMIN D [Suspect]
     Active Substance: CALCIUM CARBONATE\CHOLECALCIFEROL
     Indication: Product used for unknown indication
     Route: 065
  49. CALTRATE WITH VITAMIN D [Suspect]
     Active Substance: CALCIUM CARBONATE\CHOLECALCIFEROL
     Route: 065
  50. CALTRATE WITH VITAMIN D [Suspect]
     Active Substance: CALCIUM CARBONATE\CHOLECALCIFEROL
     Route: 065
  51. CALTRATE WITH VITAMIN D [Suspect]
     Active Substance: CALCIUM CARBONATE\CHOLECALCIFEROL
     Route: 065
  52. DICLOFENAC [Concomitant]
     Active Substance: DICLOFENAC
     Indication: Product used for unknown indication
  53. TUMS ULTRA [Suspect]
     Active Substance: CALCIUM CARBONATE
     Indication: Product used for unknown indication
     Route: 065
  54. TUMS ULTRA [Suspect]
     Active Substance: CALCIUM CARBONATE
     Route: 065
  55. TUMS ULTRA [Suspect]
     Active Substance: CALCIUM CARBONATE
     Route: 065
  56. TELMISARTAN [Suspect]
     Active Substance: TELMISARTAN
     Indication: Hypertension
     Route: 065
  57. TELMISARTAN [Suspect]
     Active Substance: TELMISARTAN
     Route: 065
  58. TELMISARTAN [Suspect]
     Active Substance: TELMISARTAN
     Route: 065
  59. TELMISARTAN [Suspect]
     Active Substance: TELMISARTAN
     Route: 065
  60. VITAMIN B6 [Suspect]
     Active Substance: PYRIDOXINE HYDROCHLORIDE
     Indication: Product used for unknown indication
     Route: 065
  61. PYRIDOXINE [Concomitant]
     Active Substance: PYRIDOXINE
     Indication: Product used for unknown indication
  62. PYRIDOXINE HYDROCHLORIDE [Concomitant]
     Active Substance: PYRIDOXINE HYDROCHLORIDE
     Indication: Product used for unknown indication
  63. GABAPENTIN [Suspect]
     Active Substance: GABAPENTIN
     Indication: Arthralgia
     Route: 065
  64. GABAPENTIN [Suspect]
     Active Substance: GABAPENTIN
     Route: 065
  65. NAPROXEN [Suspect]
     Active Substance: NAPROXEN
     Indication: Arthralgia
     Route: 065
  66. PANADOL [Suspect]
     Active Substance: ACETAMINOPHEN
     Indication: Product used for unknown indication
     Route: 065
  67. PANADOL [Suspect]
     Active Substance: ACETAMINOPHEN
     Route: 065
  68. PANADOL [Suspect]
     Active Substance: ACETAMINOPHEN
     Route: 065
  69. PANADOL [Suspect]
     Active Substance: ACETAMINOPHEN
     Route: 065
  70. PANADOL [Suspect]
     Active Substance: ACETAMINOPHEN
     Route: 065
  71. PANADOL [Suspect]
     Active Substance: ACETAMINOPHEN
     Route: 065
  72. PANADOL [Suspect]
     Active Substance: ACETAMINOPHEN
     Route: 065
  73. PANADOL [Suspect]
     Active Substance: ACETAMINOPHEN
     Route: 065
  74. AMOXICILLIN TRIHYDRATE [Suspect]
     Active Substance: AMOXICILLIN
     Indication: Sinusitis
     Route: 065
  75. BRINZOLAMIDE\TIMOLOL MALEATE [Suspect]
     Active Substance: BRINZOLAMIDE\TIMOLOL MALEATE
     Indication: Glaucoma
     Route: 047
  76. BRINZOLAMIDE\TIMOLOL MALEATE [Suspect]
     Active Substance: BRINZOLAMIDE\TIMOLOL MALEATE
     Route: 047
  77. BRINZOLAMIDE\TIMOLOL MALEATE [Suspect]
     Active Substance: BRINZOLAMIDE\TIMOLOL MALEATE
     Route: 065
  78. BRINZOLAMIDE\TIMOLOL MALEATE [Suspect]
     Active Substance: BRINZOLAMIDE\TIMOLOL MALEATE
     Route: 047
  79. BRINZOLAMIDE\TIMOLOL MALEATE [Suspect]
     Active Substance: BRINZOLAMIDE\TIMOLOL MALEATE
     Route: 065

REACTIONS (8)
  - Epidermal necrosis [Recovered/Resolved]
  - Rash papular [Recovered/Resolved]
  - Rash erythematous [Recovered/Resolved]
  - Haemoglobin decreased [Recovered/Resolved]
  - Product use in unapproved indication [Recovered/Resolved]
  - Off label use [Recovered/Resolved]
  - Toxic epidermal necrolysis [Recovered/Resolved]
  - Nikolsky^s sign positive [Unknown]
